FAERS Safety Report 23764176 (Version 1)
Quarter: 2024Q2

REPORT INFORMATION
  Report Type: Spontaneous
  Country: US (occurrence: US)
  Receive Date: 20240420
  Receipt Date: 20240420
  Transmission Date: 20240716
  Serious: No
  Sender: FDA-Public Use
  Company Number: US-ABBVIE-5725518

PATIENT
  Sex: Female

DRUGS (1)
  1. RINVOQ [Suspect]
     Active Substance: UPADACITINIB
     Indication: Product used for unknown indication
     Route: 048

REACTIONS (6)
  - Oral herpes [Not Recovered/Not Resolved]
  - Ocular hyperaemia [Unknown]
  - Myalgia [Unknown]
  - Mouth ulceration [Unknown]
  - Fatigue [Unknown]
  - Condition aggravated [Unknown]
